APPROVED DRUG PRODUCT: MECLIZINE HYDROCHLORIDE
Active Ingredient: MECLIZINE HYDROCHLORIDE
Strength: 12.5MG
Dosage Form/Route: TABLET;ORAL
Application: A084843 | Product #002 | TE Code: AA
Applicant: SANDOZ INC
Approved: May 22, 1989 | RLD: No | RS: No | Type: RX